FAERS Safety Report 17351712 (Version 2)
Quarter: 2020Q1

REPORT INFORMATION
  Report Type: Spontaneous
  Country: IT (occurrence: IT)
  Receive Date: 20200130
  Receipt Date: 20200316
  Transmission Date: 20200409
  Serious: Yes (Other)
  Sender: FDA-Public Use
  Company Number: IT-ABBVIE-20K-083-3256759-00

PATIENT
  Age: 54 Year
  Sex: Male

DRUGS (1)
  1. IMBRUVICA [Suspect]
     Active Substance: IBRUTINIB
     Indication: CHRONIC LYMPHOCYTIC LEUKAEMIA
     Route: 048
     Dates: start: 20160415, end: 20191217

REACTIONS (3)
  - Off label use [Unknown]
  - Incorrect dose administered [Unknown]
  - Uveitis [Recovering/Resolving]

NARRATIVE: CASE EVENT DATE: 201802
